FAERS Safety Report 17008200 (Version 1)
Quarter: 2019Q4

REPORT INFORMATION
  Report Type: Spontaneous
  Country: RU (occurrence: RU)
  Receive Date: 20191108
  Receipt Date: 20191108
  Transmission Date: 20200122
  Serious: Yes (Other)
  Sender: FDA-Public Use
  Company Number: RU-GLAXOSMITHKLINE-RU2019EME198871

PATIENT

DRUGS (1)
  1. RELVAR ELLIPTA [Suspect]
     Active Substance: FLUTICASONE FUROATE\VILANTEROL TRIFENATATE
     Indication: ASTHMA
     Dosage: UNK 22/184
     Dates: start: 201905, end: 201906

REACTIONS (7)
  - Stomatitis [Unknown]
  - Hyperaemia [Unknown]
  - Tongue oedema [Unknown]
  - Coating in mouth [Unknown]
  - Gingivitis [Recovered/Resolved]
  - Mouth ulceration [Unknown]
  - Oral pain [Unknown]

NARRATIVE: CASE EVENT DATE: 201905
